FAERS Safety Report 23253158 (Version 1)
Quarter: 2023Q4

REPORT INFORMATION
  Report Type: Spontaneous
  Country: ES (occurrence: ES)
  Receive Date: 20231202
  Receipt Date: 20231202
  Transmission Date: 20240109
  Serious: Yes (Other)
  Sender: FDA-Public Use
  Company Number: ES-AEMPS-1450703

PATIENT
  Age: 8 Year
  Sex: Male
  Weight: 22 kg

DRUGS (2)
  1. ASPIRIN [Suspect]
     Active Substance: ASPIRIN
     Indication: Cardiac dysfunction
     Dosage: UNK
     Route: 065
     Dates: start: 20230727, end: 20231003
  2. CLOPIDOGREL [Suspect]
     Active Substance: CLOPIDOGREL BISULFATE
     Indication: Cardiac dysfunction
     Dosage: UNK
     Route: 065
     Dates: start: 20230727, end: 20231010

REACTIONS (1)
  - Anaemia [Recovered/Resolved]

NARRATIVE: CASE EVENT DATE: 20230803
